FAERS Safety Report 7938138-4 (Version None)
Quarter: 2011Q4

REPORT INFORMATION
  Report Type: 
  Country: None (occurrence: None)
  Receive Date: 20111123
  Receipt Date: 20110920
  Transmission Date: 20120403
  Serious: No
  Sender: FDA-Public Use
  Company Number: US-BRISTOL-MYERS SQUIBB COMPANY-15932874

PATIENT
  Age: 71 Year
  Sex: Male

DRUGS (7)
  1. ASPIRIN [Concomitant]
  2. AMLODIPINE [Concomitant]
  3. SIMVASTATIN [Concomitant]
  4. RESTASIS [Concomitant]
     Dosage: 1 DF= 0.05
  5. METFORMIN [Concomitant]
  6. ONGLYZA [Suspect]
     Indication: TYPE 2 DIABETES MELLITUS
     Route: 048
     Dates: start: 20101004, end: 20110404
  7. BENAZEPRIL HYDROCHLORIDE [Concomitant]
     Dosage: AT MORNING

REACTIONS (1)
  - LIP OEDEMA [None]
